FAERS Safety Report 23955058 (Version 2)
Quarter: 2024Q3

REPORT INFORMATION
  Report Type: Report from Study
  Country: US (occurrence: US)
  Receive Date: 20240610
  Receipt Date: 20240814
  Transmission Date: 20241016
  Serious: Yes (Other)
  Sender: NOVARTIS
  Company Number: US-002147023-NVSC2024US066929

PATIENT
  Sex: Female

DRUGS (1)
  1. KESIMPTA [Suspect]
     Active Substance: OFATUMUMAB
     Indication: Relapsing multiple sclerosis
     Dosage: UNK
     Route: 065
     Dates: start: 20240306

REACTIONS (17)
  - Mental impairment [Unknown]
  - Multiple sclerosis [Unknown]
  - Facial paralysis [Unknown]
  - Influenza like illness [Unknown]
  - Dry throat [Unknown]
  - Oropharyngeal pain [Unknown]
  - Lacrimation increased [Unknown]
  - Rhinorrhoea [Unknown]
  - Excessive cerumen production [Unknown]
  - Pyrexia [Unknown]
  - Ear congestion [Unknown]
  - Headache [Unknown]
  - Fatigue [Unknown]
  - Upper respiratory tract infection [Unknown]
  - Quality of life decreased [Unknown]
  - Malaise [Unknown]
  - Illness [Unknown]
